FAERS Safety Report 5395184-5 (Version None)
Quarter: 2007Q3

REPORT INFORMATION
  Report Type: 
  Country: None (occurrence: None)
  Receive Date: 20070724
  Receipt Date: 20070713
  Transmission Date: 20080115
  Serious: Yes (Life-Threatening, Hospitalization)
  Sender: FDA-Public Use
  Company Number: CH-ROCHE-507266

PATIENT
  Age: 38 Year
  Sex: Female
  Weight: 56 kg

DRUGS (5)
  1. INVIRASE [Suspect]
     Indication: DRUG USE FOR UNKNOWN INDICATION
     Dosage: TAKEN IN THE EVENING.
     Route: 048
     Dates: start: 20060801, end: 20070202
  2. KIVEXA [Suspect]
     Indication: DRUG USE FOR UNKNOWN INDICATION
     Dosage: TAKEN IN THE EVENING.
     Route: 048
     Dates: start: 20060801, end: 20070202
  3. ORTHO EVRA [Concomitant]
     Dosage: FORM: MEDICATED DRESSINGS, TRANSDERMAL PATCHES. LONG TERM THERAPY.
     Route: 003
  4. NORVIR [Concomitant]
     Dosage: TAKEN IN THE MORNING AND IN THE EVENING.
     Route: 048
     Dates: start: 20060801, end: 20070202
  5. ITINEROL B6 [Concomitant]
     Dosage: DRUG REPORTED AS ITINEROL.
     Dates: start: 20070115

REACTIONS (4)
  - COAGULATION FACTOR DECREASED [None]
  - ENCEPHALOPATHY [None]
  - HEPATOCELLULAR DAMAGE [None]
  - JAUNDICE [None]
